FAERS Safety Report 20590615 (Version 1)
Quarter: 2022Q1

REPORT INFORMATION
  Report Type: Spontaneous
  Country: MA (occurrence: MA)
  Receive Date: 20220314
  Receipt Date: 20220314
  Transmission Date: 20220423
  Serious: Yes (Death)
  Sender: FDA-Public Use
  Company Number: MA-KOREA IPSEN Pharma-2022-06495

PATIENT
  Age: 53 Year
  Sex: Male

DRUGS (2)
  1. LANREOTIDE ACETATE [Suspect]
     Active Substance: LANREOTIDE ACETATE
     Indication: Neuroendocrine tumour
     Route: 065
  2. SUNITINIB MALATE [Suspect]
     Active Substance: SUNITINIB MALATE
     Indication: Neuroendocrine tumour
     Dosage: 37.5 MG/DAY 4 WEEKS ON/ 2 WEEKS OFF.
     Route: 065

REACTIONS (6)
  - Neoplasm progression [Fatal]
  - Palmar-plantar erythrodysaesthesia syndrome [Unknown]
  - Injection site reaction [Unknown]
  - Asthenia [Unknown]
  - Hypertension [Unknown]
  - Mucosal inflammation [Unknown]
